FAERS Safety Report 4609668-8 (Version None)
Quarter: 2005Q1

REPORT INFORMATION
  Report Type: 
  Country: None (occurrence: None)
  Receive Date: 20050316
  Receipt Date: 20050307
  Transmission Date: 20050727
  Serious: Yes (Hospitalization)
  Sender: FDA-Public Use
  Company Number: FR-BRISTOL-MYERS SQUIBB COMPANY-12890638

PATIENT
  Age: 40 Year
  Sex: Male
  Weight: 65 kg

DRUGS (5)
  1. REYATAZ [Suspect]
     Route: 048
     Dates: start: 20041012
  2. NORVIR [Concomitant]
     Dates: start: 20041001
  3. EPIVIR [Concomitant]
     Dates: start: 20010601
  4. VIREAD [Concomitant]
     Dates: start: 20031001
  5. CRIXIVAN [Concomitant]
     Dates: end: 20041001

REACTIONS (2)
  - AGGRESSION [None]
  - PERSONALITY CHANGE [None]
